FAERS Safety Report 4793558-4 (Version None)
Quarter: 2005Q4

REPORT INFORMATION
  Report Type: 
  Country: None (occurrence: None)
  Receive Date: 20051006
  Receipt Date: 20050920
  Transmission Date: 20060501
  Serious: Yes (Hospitalization)
  Sender: FDA-Public Use
  Company Number: 2005BI012699

PATIENT
  Sex: Female

DRUGS (2)
  1. AVONEX [Suspect]
     Indication: MULTIPLE SCLEROSIS
     Dosage: UNKNOWN; UNK; IM
     Route: 030
  2. NATALIZUMAB [Suspect]
     Indication: MULTIPLE SCLEROSIS
     Dosage: UNKNOWN; UNK; IV
     Route: 042

REACTIONS (4)
  - DIPLEGIA [None]
  - MULTIPLE SCLEROSIS RELAPSE [None]
  - PARALYSIS [None]
  - VISUAL ACUITY REDUCED [None]
